FAERS Safety Report 8023053-0 (Version None)
Quarter: 2012Q1

REPORT INFORMATION
  Report Type: 
  Country: None (occurrence: None)
  Receive Date: 20120104
  Receipt Date: 20111230
  Transmission Date: 20120608
  Serious: Yes (Other)
  Sender: FDA-Public Use
  Company Number: US-PFIZER INC-2011317427

PATIENT
  Sex: Female
  Weight: 102 kg

DRUGS (4)
  1. REVATIO [Suspect]
     Indication: PULMONARY ARTERIAL HYPERTENSION
     Dosage: 20 MG, 3X/DAY
     Dates: start: 20110901, end: 20110101
  2. DIOVAN HCT [Concomitant]
     Indication: HYPERTENSION
     Dosage: 160 MG, 2X/DAY
  3. CARVEDILOL [Concomitant]
     Indication: PULMONARY ARTERIAL HYPERTENSION
     Dosage: 25 MG, 2X/DAY
  4. INSULIN [Concomitant]
     Indication: DIABETES MELLITUS
     Dosage: UNK

REACTIONS (5)
  - FATIGUE [None]
  - INSOMNIA [None]
  - ABASIA [None]
  - ASTHENIA [None]
  - DIZZINESS [None]
